FAERS Safety Report 10210498 (Version 1)
Quarter: 2014Q2

REPORT INFORMATION
  Report Type: Spontaneous
  Country: FR (occurrence: FR)
  Receive Date: 20140602
  Receipt Date: 20140602
  Transmission Date: 20141212
  Serious: Yes (Hospitalization)
  Sender: FDA-Public Use
  Company Number: FR-WATSON-2014-11274

PATIENT
  Age: 66 Year
  Sex: Female

DRUGS (4)
  1. CARBOPLATINE ACTAVIS [Suspect]
     Indication: ENDOMETRIAL CANCER METASTATIC
     Dosage: UNK UNK, UNKNOWN
     Route: 017
     Dates: start: 20140206, end: 20140206
  2. PACLITAXEL EBEWE [Suspect]
     Indication: ENDOMETRIAL CANCER METASTATIC
     Dosage: UNK UNK, UNKNOWN
     Route: 017
     Dates: start: 20140206, end: 20140206
  3. TAHOR [Concomitant]
     Indication: PRODUCT USED FOR UNKNOWN INDICATION
     Dosage: UNK UNK, UNKNOWN
     Route: 065
  4. XANAX [Concomitant]
     Indication: PRODUCT USED FOR UNKNOWN INDICATION
     Dosage: UNK UNK, UNKNOWN
     Route: 065

REACTIONS (4)
  - Febrile neutropenia [Recovered/Resolved]
  - Alopecia [Not Recovered/Not Resolved]
  - Myalgia [Recovered/Resolved]
  - Nausea [Recovered/Resolved]
